FAERS Safety Report 13229908 (Version 2)
Quarter: 2017Q1

REPORT INFORMATION
  Report Type: Spontaneous
  Country: US (occurrence: US)
  Receive Date: 20170214
  Receipt Date: 20170322
  Transmission Date: 20170428
  Serious: Yes (Other)
  Sender: FDA-Public Use
  Company Number: US-PFIZER INC-2017058891

PATIENT
  Age: 66 Year
  Sex: Female
  Weight: 76.2 kg

DRUGS (8)
  1. XGEVA [Suspect]
     Active Substance: DENOSUMAB
     Indication: LUNG NEOPLASM MALIGNANT
  2. DOXYCYCLINE HYCLATE. [Concomitant]
     Active Substance: DOXYCYCLINE HYCLATE
     Dosage: 100 MG, 2X/DAY
     Route: 048
  3. XGEVA [Suspect]
     Active Substance: DENOSUMAB
     Indication: BREAST CANCER
     Dosage: UNK
  4. IBRANCE [Suspect]
     Active Substance: PALBOCICLIB
     Indication: BREAST CANCER FEMALE
     Dosage: 125 MG, 1X/DAY [WITH FOOD] [ONCE A DAY 21 DAYS OFF]
     Route: 048
  5. FASLODEX [Suspect]
     Active Substance: FULVESTRANT
     Dosage: UNK UNK, CYCLIC
  6. ANASTROZOLE. [Concomitant]
     Active Substance: ANASTROZOLE
     Dosage: 1 MG, 1X/DAY
     Route: 048
  7. PROAIR HFA [Concomitant]
     Active Substance: ALBUTEROL SULFATE
     Dosage: UNK UNK, AS NEEDED [108 (90 BASE) MCG/ACT AEROSOL SOLUTION 2 PUFFS]
  8. BENZONATATE. [Concomitant]
     Active Substance: BENZONATATE
     Dosage: 200 MG, 3X/DAY
     Route: 048

REACTIONS (6)
  - Nasal dryness [Unknown]
  - Stomatitis [Unknown]
  - Pneumonia [Recovered/Resolved]
  - Carcinoembryonic antigen increased [Not Recovered/Not Resolved]
  - Pain in jaw [Unknown]
  - Fatigue [Unknown]
